FAERS Safety Report 5489659-8 (Version None)
Quarter: 2007Q4

REPORT INFORMATION
  Report Type: 
  Country: None (occurrence: None)
  Receive Date: 20071018
  Receipt Date: 20071010
  Transmission Date: 20080405
  Serious: Yes (Hospitalization)
  Sender: FDA-Public Use
  Company Number: B0491404A

PATIENT
  Age: 54 Year
  Sex: Female

DRUGS (10)
  1. ZOVIRAX [Suspect]
     Dosage: 1.125G THREE TIMES PER DAY
     Route: 042
     Dates: start: 20070901, end: 20070903
  2. ZELITREX [Suspect]
     Indication: HERPES ZOSTER
     Route: 065
  3. CLAMOXYL [Concomitant]
     Dosage: 3G THREE TIMES PER DAY
     Route: 042
  4. ZOLPIDEM TARTRATE [Concomitant]
     Dosage: .5TAB PER DAY
  5. DIANTALVIC [Concomitant]
     Dosage: 2CAP THREE TIMES PER DAY
  6. EFFEXOR [Concomitant]
     Dosage: 75MG PER DAY
  7. DUPHALAC [Concomitant]
     Dosage: 2SAC PER DAY
  8. MOTILIUM [Concomitant]
     Dosage: 3SAC PER DAY
  9. RIVOTRIL [Concomitant]
     Dosage: 10DROP PER DAY
  10. ROCEPHIN [Concomitant]
     Dosage: 2G PER DAY
     Route: 042

REACTIONS (7)
  - BLOOD CREATININE INCREASED [None]
  - DIPLOPIA [None]
  - GENERAL PHYSICAL HEALTH DETERIORATION [None]
  - HEMIPARESIS [None]
  - MENINGORADICULITIS [None]
  - RENAL FAILURE ACUTE [None]
  - VISUAL DISTURBANCE [None]
